FAERS Safety Report 5602199-8 (Version None)
Quarter: 2008Q1

REPORT INFORMATION
  Report Type: 
  Country: None (occurrence: None)
  Receive Date: 20080125
  Receipt Date: 20080124
  Transmission Date: 20080703
  Serious: Yes (Hospitalization)
  Sender: FDA-Public Use
  Company Number: HQWYE397217FEB05

PATIENT
  Sex: Female

DRUGS (18)
  1. RAPAMUNE [Suspect]
     Indication: PROPHYLAXIS AGAINST TRANSPLANT REJECTION
     Route: 048
     Dates: start: 20050112, end: 20050125
  2. RAPAMUNE [Suspect]
     Route: 048
     Dates: start: 20050126, end: 20050131
  3. MEDROL [Concomitant]
     Indication: PROPHYLAXIS AGAINST TRANSPLANT REJECTION
     Route: 048
     Dates: start: 20050118, end: 20050124
  4. MEDROL [Concomitant]
     Dosage: 20 MG EVERY 1 CYC
     Route: 048
     Dates: start: 20050125, end: 20051025
  5. MEDROL [Concomitant]
     Dates: start: 20050126, end: 20050131
  6. ATENOLOL [Concomitant]
     Dosage: UNKNOWN
     Route: 065
     Dates: start: 20041030, end: 20050131
  7. ADALAT [Concomitant]
     Dosage: UNKNOWN
     Route: 065
     Dates: start: 20041129, end: 20050131
  8. BACTRIM DS [Concomitant]
     Dosage: UNKNOWN
     Route: 065
     Dates: start: 20041111, end: 20050131
  9. PROTONIX [Concomitant]
     Dosage: UNKNOWN
     Route: 065
     Dates: start: 20041030, end: 20050131
  10. NOVOLOG [Concomitant]
     Dosage: UNKNOWN
     Route: 065
     Dates: start: 20041030, end: 20050123
  11. LANTUS [Concomitant]
     Dosage: UNKNOWN
     Route: 065
     Dates: start: 20050111, end: 20050123
  12. AVAPRO [Concomitant]
     Dosage: UNKNOWN
     Route: 065
     Dates: start: 20050111, end: 20050123
  13. MAG-OX [Concomitant]
     Dosage: UNKNOWN
     Route: 065
     Dates: start: 20050111, end: 20050123
  14. POTASSIUM PHOSPHATES [Concomitant]
     Dosage: UNKNOWN
     Route: 065
     Dates: start: 20050111, end: 20050123
  15. SODIUM BICARBONATE [Concomitant]
     Dosage: UNKNOWN
     Route: 065
     Dates: start: 20050111, end: 20050123
  16. CELLCEPT [Suspect]
     Indication: PROPHYLAXIS AGAINST TRANSPLANT REJECTION
     Route: 048
     Dates: start: 20041214, end: 20050127
  17. CELLCEPT [Suspect]
     Route: 048
     Dates: start: 20050128, end: 20050131
  18. LIPITOR [Concomitant]
     Dosage: UNKNOWN
     Route: 065
     Dates: start: 20050105, end: 20050123

REACTIONS (5)
  - ASCITES [None]
  - CLOSTRIDIUM DIFFICILE COLITIS [None]
  - ILEUS PARALYTIC [None]
  - PANCYTOPENIA [None]
  - SINUS TACHYCARDIA [None]
